FAERS Safety Report 9852439 (Version 1)
Quarter: 2014Q1

REPORT INFORMATION
  Report Type: Spontaneous
  Country: DE (occurrence: DE)
  Receive Date: 20140129
  Receipt Date: 20140129
  Transmission Date: 20141002
  Serious: Yes (Other)
  Sender: FDA-Public Use
  Company Number: DE-SA-2014SA009872

PATIENT
  Age: 62 Year
  Sex: Male

DRUGS (2)
  1. GLIMEPIRIDE [Suspect]
     Indication: DIABETES MELLITUS
     Route: 048
     Dates: start: 201312
  2. NOSCAPINE [Suspect]
     Indication: COUGH
     Route: 048
     Dates: start: 201312

REACTIONS (1)
  - Ocular hypertension [Recovered/Resolved]
